FAERS Safety Report 21628602 (Version 1)
Quarter: 2022Q4

REPORT INFORMATION
  Report Type: Spontaneous
  Country: DE (occurrence: DE)
  Receive Date: 20221122
  Receipt Date: 20221122
  Transmission Date: 20230113
  Serious: No
  Sender: FDA-Public Use
  Company Number: DE-PFIZER INC-202201253960

PATIENT
  Age: 62 Year
  Sex: Female
  Weight: 59 kg

DRUGS (1)
  1. PAXLOVID [Suspect]
     Active Substance: NIRMATRELVIR\RITONAVIR
     Indication: COVID-19 treatment
     Dosage: UNK
     Dates: start: 20221019, end: 20221023

REACTIONS (6)
  - Dysgeusia [Recovered/Resolved]
  - Headache [Recovered/Resolved]
  - Tongue blistering [Unknown]
  - Saliva discolouration [Unknown]
  - Constipation [Unknown]
  - Incorrect product administration duration [Unknown]

NARRATIVE: CASE EVENT DATE: 20221019
